FAERS Safety Report 8628070 (Version 9)
Quarter: 2014Q3

REPORT INFORMATION
  Report Type: Report from Study
  Country: US (occurrence: US)
  Receive Date: 20120621
  Receipt Date: 20140924
  Transmission Date: 20150326
  Serious: Yes (Hospitalization, Other)
  Sender: FDA-Public Use
  Company Number: US-JNJFOC-20120605803

PATIENT
  Age: 17 Year
  Sex: Male
  Weight: 51.1 kg

DRUGS (12)
  1. 5-ASA [Concomitant]
     Active Substance: MESALAMINE
  2. VITAMIN D3 [Concomitant]
     Active Substance: CHOLECALCIFEROL
  3. PENTASA [Concomitant]
     Active Substance: MESALAMINE
  4. 6-MERCAPTOPURINE [Concomitant]
     Active Substance: MERCAPTOPURINE
  5. CALTRATE [Concomitant]
     Active Substance: CALCIUM CARBONATE
  6. FERROUS SULFATE [Concomitant]
     Active Substance: FERROUS SULFATE\FERROUS SULFATE, DRIED
  7. REMICADE [Suspect]
     Active Substance: INFLIXIMAB
     Indication: CROHN^S DISEASE
     Route: 042
     Dates: start: 20120418
  8. HUMIRA [Concomitant]
     Active Substance: ADALIMUMAB
     Indication: CROHN^S DISEASE
     Dates: start: 20120711
  9. MIRALAX [Concomitant]
     Active Substance: POLYETHYLENE GLYCOL 3350
  10. REMICADE [Suspect]
     Active Substance: INFLIXIMAB
     Indication: CROHN^S DISEASE
     Route: 042
     Dates: start: 20120531
  11. REMICADE [Suspect]
     Active Substance: INFLIXIMAB
     Indication: CROHN^S DISEASE
     Route: 042
     Dates: start: 20120430
  12. TACROLIMUS. [Concomitant]
     Active Substance: TACROLIMUS

REACTIONS (7)
  - Yersinia infection [Recovered/Resolved]
  - Rectal abscess [Recovered/Resolved]
  - Rectal stenosis [Recovered/Resolved]
  - Anal fistula [Not Recovered/Not Resolved]
  - Anal fistula [Not Recovered/Not Resolved]
  - Perirectal abscess [Recovered/Resolved]
  - Perirectal abscess [Recovered/Resolved]

NARRATIVE: CASE EVENT DATE: 20120608
